FAERS Safety Report 5045628-3 (Version None)
Quarter: 2006Q3

REPORT INFORMATION
  Report Type: 
  Country: None (occurrence: None)
  Receive Date: 20060707
  Receipt Date: 20060627
  Transmission Date: 20061208
  Serious: Yes (Hospitalization)
  Sender: FDA-Public Use
  Company Number: FR-ABBOTT-06P-056-0337174-00

PATIENT
  Age: 76 Year
  Sex: Female
  Weight: 95 kg

DRUGS (19)
  1. LIPANTHYL TABLETS [Suspect]
     Indication: DYSLIPIDAEMIA
     Route: 048
     Dates: start: 20010101, end: 20060208
  2. ACTOS [Suspect]
     Indication: DIABETES MELLITUS NON-INSULIN-DEPENDENT
     Route: 048
     Dates: start: 20050101, end: 20060210
  3. VAGOSTABYL [Suspect]
     Indication: CARDIAC DISORDER
     Route: 048
     Dates: end: 20060208
  4. CAPIVEN [Suspect]
     Indication: VENOUS INSUFFICIENCY
     Route: 048
     Dates: end: 20060208
  5. MIGLITOL [Suspect]
     Indication: DIABETES MELLITUS NON-INSULIN-DEPENDENT
     Route: 048
     Dates: end: 20060208
  6. NYSTATIN [Suspect]
     Indication: FUNGAL INFECTION
     Route: 048
     Dates: start: 20060124, end: 20060127
  7. NYSTATIN [Suspect]
     Indication: ORAL FUNGAL INFECTION
  8. METFORMIN [Concomitant]
     Indication: DIABETES MELLITUS NON-INSULIN-DEPENDENT
     Route: 048
  9. BETAXOLOL [Concomitant]
     Indication: HYPERTENSION
     Route: 048
  10. NICARDIPINE HYDROCHLORIDE [Concomitant]
     Indication: HYPERTENSION
     Route: 048
  11. MILNACIPRAN [Concomitant]
     Indication: DEPRESSION
     Route: 048
     Dates: end: 20060208
  12. MILNACIPRAN [Concomitant]
     Route: 048
     Dates: start: 20060213
  13. PARACETAMOL [Concomitant]
     Indication: PAIN
     Route: 048
     Dates: end: 20060208
  14. SPIRONOLACTONE [Concomitant]
     Indication: ESSENTIAL HYPERTENSION
     Route: 048
  15. ASPIRIN [Concomitant]
     Indication: THROMBOSIS PROPHYLAXIS
     Route: 048
  16. CARBOCISTEINE [Concomitant]
     Indication: COUGH
     Route: 048
  17. ALPRAZOLAM [Concomitant]
     Indication: ANXIETY
     Route: 048
  18. MEGAMYLASE [Concomitant]
     Indication: DRUG USE FOR UNKNOWN INDICATION
     Route: 048
     Dates: end: 20060204
  19. FEXOFENADINE [Concomitant]
     Indication: DRUG USE FOR UNKNOWN INDICATION
     Route: 048
     Dates: end: 20060204

REACTIONS (4)
  - DERMATITIS EXFOLIATIVE [None]
  - HYPERSENSITIVITY [None]
  - RASH PRURITIC [None]
  - SKIN EXFOLIATION [None]
